FAERS Safety Report 20593430 (Version 10)
Quarter: 2022Q3

REPORT INFORMATION
  Report Type: Spontaneous
  Country: CA (occurrence: CA)
  Receive Date: 20220315
  Receipt Date: 20220701
  Transmission Date: 20221026
  Serious: Yes (Other)
  Sender: FDA-Public Use
  Company Number: CA-CELLTRION INC.-2022CA003020

PATIENT

DRUGS (9)
  1. INFLECTRA [Suspect]
     Active Substance: INFLIXIMAB-DYYB
     Indication: Colitis ulcerative
     Dosage: 5 MG/KG,WEEK 0,2,6, THEN Q8WEEKS
     Route: 042
     Dates: start: 20220303
  2. INFLECTRA [Suspect]
     Active Substance: INFLIXIMAB-DYYB
     Dosage: 5 MG/KG,WEEK 0,2,6, THEN Q8WEEKS
     Route: 042
     Dates: start: 20220303, end: 20220418
  3. INFLECTRA [Suspect]
     Active Substance: INFLIXIMAB-DYYB
     Dosage: 5 MG/KG,WEEK 0,2,6, THEN Q8WEEKS, INFUSION RESTARTED (14:40)-INFUSION COMPLETED (16:40)
     Route: 042
  4. INFLECTRA [Suspect]
     Active Substance: INFLIXIMAB-DYYB
     Dosage: 5 MG/KG,WEEK 0,2,6, THEN Q8WEEKS
     Route: 042
     Dates: start: 20220317, end: 20220317
  5. INFLECTRA [Suspect]
     Active Substance: INFLIXIMAB-DYYB
     Dosage: 5 MG/KG,WEEK 0,2,6, THEN Q8WEEKS
     Route: 042
     Dates: start: 20220418
  6. INFLECTRA [Suspect]
     Active Substance: INFLIXIMAB-DYYB
     Dosage: 5 MG/KG,WEEK 0,2,6, THEN Q8WEEKS
     Route: 042
     Dates: start: 20220418
  7. INFLECTRA [Suspect]
     Active Substance: INFLIXIMAB-DYYB
     Dosage: 10 MG/KG, REINDUCTION WEEKS 0,2,6 THEN Q 4 WEEKS
     Route: 042
     Dates: start: 20220503, end: 20220613
  8. INFLECTRA [Suspect]
     Active Substance: INFLIXIMAB-DYYB
     Dosage: 10 MG/KG, REINDUCTION WEEKS 0,2,6 THEN Q 4 WEEKS
     Route: 042
     Dates: start: 20220516
  9. INFLECTRA [Suspect]
     Active Substance: INFLIXIMAB-DYYB
     Dosage: 10 MG/KG, REINDUCTION WEEKS 0,2,6 THEN Q 4 WEEKS
     Route: 042
     Dates: start: 20220613

REACTIONS (9)
  - Pharyngeal paraesthesia [Recovered/Resolved]
  - Paraesthesia [Recovered/Resolved]
  - Drug level decreased [Not Recovered/Not Resolved]
  - Off label use [Unknown]
  - Inappropriate schedule of product administration [Unknown]
  - Condition aggravated [Not Recovered/Not Resolved]
  - Discomfort [Unknown]
  - Paraesthesia [Recovered/Resolved]
  - Anxiety [Unknown]

NARRATIVE: CASE EVENT DATE: 20220303
